FAERS Safety Report 5349886-7 (Version None)
Quarter: 2007Q2

REPORT INFORMATION
  Report Type: 
  Country: None (occurrence: None)
  Receive Date: 20070607
  Receipt Date: 20070531
  Transmission Date: 20071010
  Serious: Yes (Other)
  Sender: FDA-Public Use
  Company Number: US-PFIZER INC-2006155078

PATIENT
  Sex: Female
  Weight: 58.1 kg

DRUGS (3)
  1. DEPO-PROVERA [Suspect]
     Indication: PREMENSTRUAL SYNDROME
     Route: 030
     Dates: start: 20060901, end: 20060901
  2. DEPO-PROVERA [Suspect]
     Indication: MENSTRUAL DISCOMFORT
     Route: 030
     Dates: start: 20061001, end: 20061001
  3. BACLOFEN [Concomitant]

REACTIONS (6)
  - ANXIETY [None]
  - CONDITION AGGRAVATED [None]
  - MENORRHAGIA [None]
  - PARANOIA [None]
  - PELVIC PAIN [None]
  - TOOTH DISORDER [None]
